FAERS Safety Report 4893259-8 (Version None)
Quarter: 2006Q1

REPORT INFORMATION
  Report Type: 
  Country: None (occurrence: None)
  Receive Date: 20060124
  Receipt Date: 20060109
  Transmission Date: 20060701
  Serious: Yes (Life-Threatening)
  Sender: FDA-Public Use
  Company Number: 6019705

PATIENT
  Age: 72 Year
  Sex: Female

DRUGS (6)
  1. LEVOTHYROXINE SODIUM [Suspect]
     Dosage: 1 DOSAGE FORMS, (1 DOSAGE FORMS, 1 IN 1 D), ORAL
     Route: 048
     Dates: start: 20040101
  2. SOPROL (10 MG, TABLET) (BISOPROLOL FUMARATE) [Suspect]
     Dosage: 1 DOSAGE FORMS, (1 DOSAGE FORMS, 1 IN 1 D), ORAL
     Route: 048
     Dates: start: 20020101, end: 20040101
  3. PIRACETAM (PIRACETAM) [Suspect]
     Dosage: 3 DOSAGE FORMS, (3 DOSAGE FORMS, 1 D)
     Dates: start: 20020101, end: 20040101
  4. ALPRESS TABLET (PRAZOSIN HYDROCHLORIDE) [Suspect]
     Dosage: 1 DOSAGE FORMS, (1 DOSAGE FORMS, 1 IN 1 D), ORAL
     Route: 048
     Dates: start: 20020101, end: 20040101
  5. VIOXX [Suspect]
     Dosage: 1 DOSAGE FORMS, (1 DOSAGE FORMS, 1 IN 1 D), ORAL
     Route: 048
     Dates: start: 20020101, end: 20040101
  6. CELEBREX [Suspect]
     Dosage: 1 DOSAGE FORMS, (1 DOSAGE FORMS, 1 IN 1 D), ORAL
     Route: 048
     Dates: start: 20040101

REACTIONS (13)
  - CEREBROVASCULAR ACCIDENT [None]
  - CHEST PAIN [None]
  - COMA [None]
  - CONDITION AGGRAVATED [None]
  - DEMENTIA [None]
  - DIABETES MELLITUS NON-INSULIN-DEPENDENT [None]
  - DYSPHAGIA [None]
  - HAEMATOMA [None]
  - HYPERTENSION [None]
  - MIGRAINE [None]
  - MOOD ALTERED [None]
  - MUSCULOSKELETAL PAIN [None]
  - TINNITUS [None]
